FAERS Safety Report 5530382-9 (Version None)
Quarter: 2007Q4

REPORT INFORMATION
  Report Type: 
  Country: None (occurrence: None)
  Receive Date: 20071130
  Receipt Date: 20071119
  Transmission Date: 20080405
  Serious: No
  Sender: FDA-Public Use
  Company Number: US-ABBOTT-07P-163-0425637-00

PATIENT
  Sex: Male
  Weight: 83.99 kg

DRUGS (3)
  1. ZEMPLAR [Suspect]
     Indication: HYPERPARATHYROIDISM
     Route: 048
     Dates: start: 20070601
  2. WARFARIN SODIUM [Concomitant]
     Indication: ARTERIAL GRAFT
     Route: 048
     Dates: start: 20040101
  3. GLYBURIDE [Concomitant]
     Indication: DIABETES MELLITUS
     Route: 048

REACTIONS (1)
  - BLOOD GLUCOSE INCREASED [None]
